FAERS Safety Report 11143713 (Version 1)
Quarter: 2015Q2

REPORT INFORMATION
  Report Type: Spontaneous
  Country: US (occurrence: US)
  Receive Date: 20150526
  Receipt Date: 20150526
  Transmission Date: 20150821
  Serious: No
  Sender: FDA-Public Use
  Company Number: US-BAYER-2015-250473

PATIENT
  Age: 81 Year
  Sex: Female
  Weight: 59 kg

DRUGS (10)
  1. FISH OIL [Concomitant]
     Active Substance: FISH OIL
     Dosage: 2 DF, DAILY
  2. LEVOTHYROXINE [Concomitant]
     Active Substance: LEVOTHYROXINE
  3. ONE A DAY WOMENS VITACRAVES GUMMIES [Concomitant]
     Active Substance: VITAMINS
     Dosage: 1 DF, QD
  4. GLUCOSAMINE [GLUCOSAMINE] [Concomitant]
     Dosage: 2 DF, PER DAY
  5. CLARITIN [Suspect]
     Active Substance: LORATADINE
     Indication: RHINORRHOEA
     Dosage: 1 DF, QD AT NIGHT
     Dates: start: 20150304, end: 20150314
  6. ASCAL [ACETYLSALICYLATE CALCIUM] [Concomitant]
     Dosage: 2 DF, DAY
  7. BIOTIN [Concomitant]
     Active Substance: BIOTIN
     Dosage: 1 DF, QD
  8. LYRICA [Concomitant]
     Active Substance: PREGABALIN
  9. VITAMIN D [Concomitant]
     Active Substance: CHOLECALCIFEROL
     Dosage: 1 DF, QD
  10. LAMISIL [Concomitant]
     Active Substance: TERBINAFINE HYDROCHLORIDE

REACTIONS (3)
  - Nasal discomfort [Recovered/Resolved]
  - Sleep disorder [Recovered/Resolved]
  - Nasal dryness [Recovered/Resolved]

NARRATIVE: CASE EVENT DATE: 20150310
